FAERS Safety Report 15538329 (Version 1)
Quarter: 2018Q4

REPORT INFORMATION
  Report Type: Spontaneous
  Country: PL (occurrence: PL)
  Receive Date: 20181022
  Receipt Date: 20181022
  Transmission Date: 20190205
  Serious: Yes (Hospitalization, Other)
  Sender: FDA-Public Use
  Company Number: PL-MYLANLABS-2018M1078428

PATIENT
  Age: 51 Year
  Sex: Male

DRUGS (3)
  1. FLUOROURACIL. [Suspect]
     Active Substance: FLUOROURACIL
     Indication: TONGUE NEOPLASM
     Dosage: 1800 MG, QD (1800 MG/DAY BY CONTINUOUS INFUSION OVER 96 HOURS)
  2. CISPLATIN. [Suspect]
     Active Substance: CISPLATIN
     Indication: TONGUE NEOPLASM
     Dosage: 180 MG, QD (CISPLATIN 180 MG 1 DAY)
  3. DOCETAXEL. [Suspect]
     Active Substance: DOCETAXEL
     Indication: TONGUE NEOPLASM
     Dosage: 140 MG, QD (140 MG 1 DAY)

REACTIONS (6)
  - Oliguria [Recovering/Resolving]
  - Drug ineffective [Unknown]
  - Nephropathy toxic [Unknown]
  - Lymphadenopathy [Unknown]
  - Acute kidney injury [Recovering/Resolving]
  - Disease progression [Unknown]
